FAERS Safety Report 25931716 (Version 1)
Quarter: 2025Q4

REPORT INFORMATION
  Report Type: Spontaneous
  Country: US (occurrence: US)
  Receive Date: 20251016
  Receipt Date: 20251016
  Transmission Date: 20260118
  Serious: Yes (Hospitalization, Other)
  Sender: VERTEX
  Company Number: US-VERTEX PHARMACEUTICALS-2025-016720

PATIENT
  Age: 10 Year

DRUGS (11)
  1. IVACAFTOR\LUMACAFTOR [Suspect]
     Active Substance: IVACAFTOR\LUMACAFTOR
     Indication: Cystic fibrosis
     Dosage: (LUMACAFTOR/IVACAFTOR)
     Route: 048
  2. TOBRAMYCIN [Suspect]
     Active Substance: TOBRAMYCIN
     Indication: Pseudomonas infection
     Dosage: 470 MG (10 MG/KG), QD (EVERY 24 H)
     Route: 042
  3. TOBRAMYCIN [Suspect]
     Active Substance: TOBRAMYCIN
     Indication: Staphylococcal infection
     Dosage: UNK
  4. DORNASE ALFA [Concomitant]
     Active Substance: DORNASE ALFA
     Dosage: UNK
  5. SODIUM CHLORIDE [Concomitant]
     Active Substance: SODIUM CHLORIDE
     Dosage: 7 %
  6. AZITHROMYCIN [Concomitant]
     Active Substance: AZITHROMYCIN
     Dosage: UNK
  7. AZTREONAM [Concomitant]
     Active Substance: AZTREONAM
  8. CEFTAZIDIME [Concomitant]
     Active Substance: CEFTAZIDIME
     Indication: Pseudomonas infection
     Dosage: 2000 MG (42.5 MG/KG; MAX: 2000 MG/DOSE), TID
     Route: 042
  9. CEFTAZIDIME [Concomitant]
     Active Substance: CEFTAZIDIME
     Indication: Staphylococcal infection
  10. SULFAMETHOXAZOLE\TRIMETHOPRIM [Concomitant]
     Active Substance: SULFAMETHOXAZOLE\TRIMETHOPRIM
     Indication: Pseudomonas infection
     Dosage: 160?800 MG (3.3 MG TRIMETHOPRIM/KG; MAX: 160 MG TRIMETHOPRIM/DOSE), BID
     Route: 048
  11. SULFAMETHOXAZOLE\TRIMETHOPRIM [Concomitant]
     Active Substance: SULFAMETHOXAZOLE\TRIMETHOPRIM
     Indication: Staphylococcal infection

REACTIONS (2)
  - Forced expiratory volume decreased [Unknown]
  - Anaphylactic reaction [Recovered/Resolved]
